FAERS Safety Report 4607846-5 (Version None)
Quarter: 2005Q1

REPORT INFORMATION
  Report Type: 
  Country: None (occurrence: None)
  Receive Date: 20050310
  Receipt Date: 20050303
  Transmission Date: 20050727
  Serious: Yes (Life-Threatening)
  Sender: FDA-Public Use
  Company Number: 200510106BYL

PATIENT
  Age: 83 Year
  Sex: Male

DRUGS (4)
  1. ASPIRIN [Suspect]
     Indication: ANGINA PECTORIS
     Dosage: 200 MG, TOTAL DAILY, ORAL
     Route: 048
     Dates: start: 20050104, end: 20050302
  2. PANALDINE [Concomitant]
  3. SELBEX [Concomitant]
  4. SIGMART [Concomitant]

REACTIONS (5)
  - HEPATIC FAILURE [None]
  - HISTIOCYTOSIS HAEMATOPHAGIC [None]
  - POST PROCEDURAL COMPLICATION [None]
  - RENAL FAILURE ACUTE [None]
  - THROMBOCYTOPENIA [None]
